FAERS Safety Report 10894783 (Version 1)
Quarter: 2015Q1

REPORT INFORMATION
  Report Type: Spontaneous
  Country: US (occurrence: US)
  Receive Date: 20150306
  Receipt Date: 20150306
  Transmission Date: 20150721
  Serious: No
  Sender: FDA-Public Use
  Company Number: US-GLAXOSMITHKLINE-US2015006739

PATIENT
  Age: 18 Year
  Sex: Female

DRUGS (1)
  1. FABIOR [Suspect]
     Active Substance: TAZAROTENE
     Indication: ACNE
     Dosage: UNK, QD
     Route: 061
     Dates: start: 20150108, end: 20150114

REACTIONS (6)
  - Application site erythema [Recovering/Resolving]
  - Rash macular [Recovering/Resolving]
  - Pain [Recovering/Resolving]
  - Adverse event [Unknown]
  - Application site exfoliation [Recovering/Resolving]
  - Hypersensitivity [Recovering/Resolving]

NARRATIVE: CASE EVENT DATE: 201501
